FAERS Safety Report 11623921 (Version 1)
Quarter: 2015Q4

REPORT INFORMATION
  Report Type: Spontaneous
  Country: US (occurrence: US)
  Receive Date: 20151013
  Receipt Date: 20151013
  Transmission Date: 20160304
  Serious: No
  Sender: FDA-Public Use
  Company Number: US-JNJFOC-20150914200

PATIENT
  Sex: Female

DRUGS (2)
  1. ROGAINE [Suspect]
     Active Substance: MINOXIDIL
     Indication: ALOPECIA
     Dosage: SINCE 6 WEEKS
     Route: 061
  2. ROGAINE [Suspect]
     Active Substance: MINOXIDIL
     Route: 061

REACTIONS (2)
  - Pruritus [Unknown]
  - Alopecia [Unknown]
